FAERS Safety Report 5675487-7 (Version None)
Quarter: 2008Q1

REPORT INFORMATION
  Report Type: 
  Country: None (occurrence: None)
  Receive Date: 20080321
  Receipt Date: 20080321
  Transmission Date: 20080703
  Serious: Yes (Life-Threatening, Hospitalization, Other)
  Sender: FDA-Public Use
  Company Number: None

PATIENT
  Age: 54 Year
  Sex: Female
  Weight: 113.3993 kg

DRUGS (1)
  1. HEPARIN [Suspect]

REACTIONS (7)
  - GAIT DISTURBANCE [None]
  - INJURY [None]
  - INTRACARDIAC THROMBUS [None]
  - PRURITUS [None]
  - PULMONARY THROMBOSIS [None]
  - RESPIRATORY FAILURE [None]
  - THROMBOSIS [None]
